FAERS Safety Report 19141350 (Version 1)
Quarter: 2021Q2

REPORT INFORMATION
  Report Type: Spontaneous
  Country: FR (occurrence: FR)
  Receive Date: 20210415
  Receipt Date: 20210415
  Transmission Date: 20210717
  Serious: Yes (Hospitalization, Other)
  Sender: FDA-Public Use
  Company Number: FR-SA-2021SA123253

PATIENT
  Age: 84 Year
  Sex: Male

DRUGS (3)
  1. RIFAMPICIN [Suspect]
     Active Substance: RIFAMPIN
     Indication: SEPSIS
     Route: 048
     Dates: start: 20200901, end: 20200903
  2. ORBENINE [Suspect]
     Active Substance: CLOXACILLIN SODIUM
     Indication: SEPSIS
     Dosage: 12 DF, QD
     Route: 042
     Dates: start: 20200808, end: 20200831
  3. OFLOCET [Suspect]
     Active Substance: OFLOXACIN
     Indication: SEPSIS
     Dosage: STRENGTH: 200 MG/40 ML
     Route: 042
     Dates: start: 20200901, end: 20200903

REACTIONS (3)
  - Rash maculo-papular [Recovered/Resolved]
  - Eosinophilia [Recovered/Resolved]
  - Nephritis allergic [Recovered/Resolved]

NARRATIVE: CASE EVENT DATE: 20200903
